FAERS Safety Report 12557592 (Version 1)
Quarter: 2016Q3

REPORT INFORMATION
  Report Type: Spontaneous
  Country: GB (occurrence: GB)
  Receive Date: 20160714
  Receipt Date: 20160714
  Transmission Date: 20161109
  Serious: Yes (Other)
  Sender: FDA-Public Use
  Company Number: GB-PFIZER INC-1680087

PATIENT
  Age: 80 Year
  Sex: Female

DRUGS (1)
  1. METHOTREXATE (METHOTREXATE SODIUM) [Suspect]
     Active Substance: METHOTREXATE SODIUM
     Dosage: 10 MG THREE TABLETS ONCE A WEEK
     Route: 048

REACTIONS (4)
  - Choking [Unknown]
  - Dysphagia [Unknown]
  - Product size issue [Unknown]
  - Product quality issue [Unknown]
